FAERS Safety Report 5964374-2 (Version None)
Quarter: 2008Q4

REPORT INFORMATION
  Report Type: 
  Country: None (occurrence: None)
  Receive Date: 20081124
  Receipt Date: 20080409
  Transmission Date: 20090506
  Serious: Yes (Congenital Anomaly)
  Sender: FDA-Public Use
  Company Number: CO-GENENTECH-272115

PATIENT
  Sex: Female

DRUGS (1)
  1. PULMOZYME [Suspect]
     Indication: CYSTIC FIBROSIS
     Dosage: 2.5 MG, QD
     Route: 064
     Dates: start: 20051101, end: 20070630

REACTIONS (5)
  - CARDIAC MURMUR [None]
  - CEREBRAL HAEMORRHAGE [None]
  - CLEFT PALATE [None]
  - MECONIUM ILEUS [None]
  - PREMATURE BABY [None]
